FAERS Safety Report 4809929-3 (Version None)
Quarter: 2005Q4

REPORT INFORMATION
  Report Type: 
  Country: None (occurrence: None)
  Receive Date: 20051024
  Receipt Date: 20051010
  Transmission Date: 20060501
  Serious: Yes (Hospitalization, Other)
  Sender: FDA-Public Use
  Company Number: 2005136830

PATIENT
  Age: 73 Year
  Sex: Male

DRUGS (3)
  1. VIAGRA [Suspect]
     Indication: ERECTILE DYSFUNCTION
     Dosage: 50 MG (50 MG), ORAL
     Route: 048
     Dates: start: 20020101
  2. CARDURA [Suspect]
     Indication: BENIGN PROSTATIC HYPERPLASIA
     Dosage: (1 IN 1 D)
  3. LIPITOR [Suspect]
     Dosage: (20 MG, 1 IN 1 D)

REACTIONS (5)
  - ARTERIOSCLEROSIS [None]
  - CHEST DISCOMFORT [None]
  - DYSPNOEA [None]
  - VASCULAR OCCLUSION [None]
  - VASCULAR STENOSIS [None]
